FAERS Safety Report 10055294 (Version 1)
Quarter: 2014Q2

REPORT INFORMATION
  Report Type: Spontaneous
  Country: BE (occurrence: BE)
  Receive Date: 20140403
  Receipt Date: 20140403
  Transmission Date: 20141212
  Serious: Yes (Life-Threatening, Hospitalization, Other)
  Sender: FDA-Public Use
  Company Number: BE-009507513-1404BEL002055

PATIENT
  Age: 68 Year
  Sex: Male

DRUGS (1)
  1. BCG LIVE [Suspect]
     Indication: BLADDER CANCER

REACTIONS (2)
  - Multi-organ failure [Unknown]
  - Granulomatous liver disease [Unknown]
